FAERS Safety Report 8790911 (Version 2)
Quarter: 2012Q4

REPORT INFORMATION
  Report Type: Spontaneous
  Country: US (occurrence: None)
  Receive Date: 20120906
  Receipt Date: 20121001
  Transmission Date: 20130627
  Serious: Yes (Other)
  Sender: FDA-Public Use
  Company Number: AXC-2012-000387

PATIENT
  Age: 25 Year
  Sex: Female
  Weight: 56.7 kg

DRUGS (2)
  1. PYLERA [Suspect]
     Indication: HELICOBACTER INFECTION
     Dosage: 3 DF, qid, Oral
     Route: 048
     Dates: start: 20120818, end: 20120821
  2. PRILOSEC (OMEPRAZOLE) [Concomitant]

REACTIONS (12)
  - Metal poisoning [None]
  - Anxiety [None]
  - Dizziness [None]
  - Asthenia [None]
  - Heart rate increased [None]
  - Hypoaesthesia [None]
  - Hypoaesthesia [None]
  - Coordination abnormal [None]
  - Dysarthria [None]
  - Syncope [None]
  - Dysarthria [None]
  - Panic attack [None]
